FAERS Safety Report 9881087 (Version 4)
Quarter: 2014Q1

REPORT INFORMATION
  Report Type: Report from Study
  Country: DE (occurrence: DE)
  Receive Date: 20140207
  Receipt Date: 20140320
  Transmission Date: 20141002
  Serious: Yes (Hospitalization, Other)
  Sender: FDA-Public Use
  Company Number: DE-UCBSA-103222

PATIENT
  Age: 57 Year
  Sex: Male
  Weight: 62 kg

DRUGS (5)
  1. CIMZIA [Suspect]
     Indication: RHEUMATOID ARTHRITIS
     Dosage: UNKNOWN DOSE
  2. UNACID [Suspect]
     Indication: INFLAMMATION
     Route: 048
     Dates: start: 20131031, end: 2013
  3. UNACID [Suspect]
     Indication: SWELLING
     Route: 048
     Dates: start: 20131031, end: 2013
  4. METC Y [Concomitant]
     Indication: RHEUMATOID ARTHRITIS
     Route: 048
     Dates: start: 20060401
  5. SSZ [Concomitant]
     Indication: RHEUMATOID ARTHRITIS
     Route: 048
     Dates: start: 20090129

REACTIONS (3)
  - Rheumatoid nodule [Not Recovered/Not Resolved]
  - Osteolysis [Not Recovered/Not Resolved]
  - Staphylococcal infection [Not Recovered/Not Resolved]
